FAERS Safety Report 8551457-6 (Version None)
Quarter: 2012Q3

REPORT INFORMATION
  Report Type: 
  Country: None (occurrence: None)
  Receive Date: 20120730
  Receipt Date: 20120724
  Transmission Date: 20120928
  Serious: Yes (Other)
  Sender: FDA-Public Use
  Company Number: PHEH2012US014668

PATIENT
  Sex: Male

DRUGS (9)
  1. CRESTOR [Concomitant]
     Dosage: 20 MG, DAILY
  2. PREVACID [Concomitant]
     Dosage: 15 MG, DAILY
  3. CALCIUM [Concomitant]
     Dosage: 1000 MG, DAILY
  4. HUMALOG [Concomitant]
     Dosage: UNK UKN, PRN
  5. MULTIVITAMINS, OTHER COMBINATIONS [Concomitant]
     Dosage: UNK UKN, UNK
  6. DIOVAN [Suspect]
     Dosage: 160 MG, QD
  7. ASPIRIN [Concomitant]
     Dosage: 81 MG, DAILY
  8. IRON [Concomitant]
     Dosage: 325 MG, DAILY
  9. LOVAZA [Concomitant]
     Dosage: UNK UKN, TID

REACTIONS (1)
  - DIABETES MELLITUS [None]
